FAERS Safety Report 5847180-9 (Version None)
Quarter: 2008Q3

REPORT INFORMATION
  Report Type: 
  Country: None (occurrence: None)
  Receive Date: 20080815
  Receipt Date: 20080808
  Transmission Date: 20090109
  Serious: Yes (Other)
  Sender: FDA-Public Use
  Company Number: PHEH2008US06994

PATIENT
  Sex: Male

DRUGS (3)
  1. ZOMETA [Suspect]
     Indication: MULTIPLE MYELOMA
     Dosage: 4 MG, Q MONTHLY
     Route: 042
  2. ZOMETA [Suspect]
     Dosage: 4 MG, Q 3 MONTHS
     Route: 042
  3. AREDIA [Suspect]
     Indication: MULTIPLE MYELOMA

REACTIONS (3)
  - BONE DISORDER [None]
  - FOOT FRACTURE [None]
  - HIP FRACTURE [None]
